FAERS Safety Report 19964760 (Version 1)
Quarter: 2021Q4

REPORT INFORMATION
  Report Type: Spontaneous
  Country: US (occurrence: US)
  Receive Date: 20211018
  Receipt Date: 20211018
  Transmission Date: 20220303
  Serious: No
  Sender: FDA-Public Use
  Company Number: US-PFIZER INC-2021368195

PATIENT
  Age: 61 Year
  Sex: Female
  Weight: 56.69 kg

DRUGS (1)
  1. DILANTIN [Suspect]
     Active Substance: PHENYTOIN
     Indication: Epilepsy
     Dosage: 100 MG (400 MG ON SUNDAY, MONDAY AND WEDNESDAY, 300 MG ON TUESDAY, THURSDAY, FRIDAY AND SATURDAY)

REACTIONS (3)
  - Anaemia [Unknown]
  - White blood cell count decreased [Unknown]
  - Intentional product misuse [Unknown]
